FAERS Safety Report 5076051-3 (Version None)
Quarter: 2006Q3

REPORT INFORMATION
  Report Type: 
  Country: None (occurrence: None)
  Receive Date: 20060725
  Receipt Date: 20060331
  Transmission Date: 20061208
  Serious: No
  Sender: FDA-Public Use
  Company Number: 200612245BWH

PATIENT
  Age: 78 Year
  Sex: Female
  Weight: 74.8435 kg

DRUGS (2)
  1. NEXAVAR [Suspect]
     Indication: RENAL CELL CARCINOMA STAGE UNSPECIFIED
     Dosage: ORAL
     Route: 048
     Dates: start: 20060323
  2. ZOMETA [Concomitant]

REACTIONS (4)
  - BLOOD PRESSURE INCREASED [None]
  - EAR PAIN [None]
  - JOINT STIFFNESS [None]
  - RASH ERYTHEMATOUS [None]
